FAERS Safety Report 24086946 (Version 1)
Quarter: 2024Q3

REPORT INFORMATION
  Report Type: Spontaneous
  Country: US (occurrence: US)
  Receive Date: 20240713
  Receipt Date: 20240713
  Transmission Date: 20241016
  Serious: No
  Sender: SANOFI AVENTIS
  Company Number: US-SA-SAC20240711000110

PATIENT
  Age: 31 Year
  Sex: Male

DRUGS (1)
  1. DUPIXENT [Suspect]
     Active Substance: DUPILUMAB
     Dosage: 300 MG, QOD
     Route: 058

REACTIONS (5)
  - Brain fog [Unknown]
  - Amnesia [Unknown]
  - Headache [Unknown]
  - Eye pain [Unknown]
  - Inappropriate schedule of product administration [Unknown]
